FAERS Safety Report 15403929 (Version 1)
Quarter: 2018Q3

REPORT INFORMATION
  Report Type: Spontaneous
  Country: US (occurrence: US)
  Receive Date: 20180919
  Receipt Date: 20180919
  Transmission Date: 20181010
  Serious: No
  Sender: FDA-Public Use
  Company Number: US-AVADEL SPECIALTY PHARMACEUTICALS, LLC-2018AVA00268

PATIENT
  Age: 85 Year
  Sex: Male
  Weight: 86.17 kg

DRUGS (10)
  1. FINASTERIDE. [Concomitant]
     Active Substance: FINASTERIDE
  2. METOPROLOL TARTRATE. [Concomitant]
     Active Substance: METOPROLOL TARTRATE
  3. PANTOPRAZOLE [Concomitant]
     Active Substance: PANTOPRAZOLE
  4. BABY ASPIRIN [Concomitant]
     Active Substance: ASPIRIN
  5. TURMERIC [Concomitant]
     Active Substance: HERBALS\TURMERIC
  6. NOCTIVA [Suspect]
     Active Substance: DESMOPRESSIN ACETATE
     Indication: NOCTURIA
     Dosage: 0.83 ?G SPRAY ALTERNATING NOSTRILS EVERY NIGHT
     Dates: start: 20180815
  7. ATORVASTATIN [Concomitant]
     Active Substance: ATORVASTATIN
  8. APPLE CIDER VINEGAR [Concomitant]
     Active Substance: APPLE CIDER VINEGAR
  9. MULTIVITAMIN [Concomitant]
     Active Substance: VITAMINS
  10. IRON [Concomitant]
     Active Substance: IRON

REACTIONS (7)
  - Micturition urgency [Recovered/Resolved]
  - Nasal discomfort [Not Recovered/Not Resolved]
  - Eye pain [Recovered/Resolved]
  - Drug effect delayed [Recovered/Resolved]
  - Lacrimation increased [Not Recovered/Not Resolved]
  - Product preparation error [Recovered/Resolved]
  - Rhinalgia [Not Recovered/Not Resolved]

NARRATIVE: CASE EVENT DATE: 20180815
